FAERS Safety Report 9349768 (Version 2)
Quarter: 2013Q2

REPORT INFORMATION
  Report Type: Spontaneous
  Country: US (occurrence: US)
  Receive Date: 20130614
  Receipt Date: 20130624
  Transmission Date: 20140414
  Serious: Yes (Hospitalization)
  Sender: FDA-Public Use
  Company Number: US-BAXTER-2013BAX021995

PATIENT
  Sex: Female

DRUGS (3)
  1. GAMMAGARD LIQUID [Suspect]
     Indication: DERMATOMYOSITIS
     Route: 042
  2. GAMMAGARD LIQUID [Suspect]
     Indication: POLYMYOSITIS
  3. GAMMAGARD LIQUID [Suspect]
     Indication: OFF LABEL USE

REACTIONS (4)
  - Adverse drug reaction [Unknown]
  - Chest pain [Unknown]
  - Fluid overload [Unknown]
  - Hyperglycaemia [Unknown]
